FAERS Safety Report 23575307 (Version 1)
Quarter: 2024Q1

REPORT INFORMATION
  Report Type: Spontaneous
  Country: US (occurrence: None)
  Receive Date: 20240227
  Receipt Date: 20240227
  Transmission Date: 20240409
  Serious: Yes (Other)
  Sender: FDA-Public Use
  Company Number: None

PATIENT
  Age: 64 Year
  Sex: Male
  Weight: 78.75 kg

DRUGS (6)
  1. ATORVASTATIN [Suspect]
     Active Substance: ATORVASTATIN
     Indication: Blood cholesterol increased
     Dosage: OTHER QUANTITY : 1 TABLET(S);?FREQUENCY : DAILY;?
     Route: 048
     Dates: start: 20231230, end: 20240122
  2. ROSUVASTATIN [Suspect]
     Active Substance: ROSUVASTATIN
  3. Lisinopril 20 mg 2x daily [Concomitant]
  4. valacyclovir 500 mg 1x daily [Concomitant]
  5. pepcid 20 mg [Concomitant]
  6. Naproxen 220 mg 2x daily [Concomitant]

REACTIONS (21)
  - Headache [None]
  - Pain [None]
  - Arthralgia [None]
  - Therapy interrupted [None]
  - Brain fog [None]
  - Muscular weakness [None]
  - Palpitations [None]
  - Dyspnoea [None]
  - Tendon disorder [None]
  - Asthenia [None]
  - Tendon injury [None]
  - Dizziness [None]
  - Malaise [None]
  - Fatigue [None]
  - Asthenia [None]
  - Dyspepsia [None]
  - Flatulence [None]
  - Myalgia [None]
  - Memory impairment [None]
  - Muscle atrophy [None]
  - Blood bilirubin increased [None]

NARRATIVE: CASE EVENT DATE: 20240120
